FAERS Safety Report 25394498 (Version 2)
Quarter: 2025Q2

REPORT INFORMATION
  Report Type: Report from Study
  Country: US (occurrence: US)
  Receive Date: 20250604
  Receipt Date: 20250606
  Transmission Date: 20250717
  Serious: No
  Sender: BRISTOL-MYERS SQUIBB COMPANY
  Company Number: US-BRISTOL-MYERS SQUIBB COMPANY-2025-079265

PATIENT
  Age: 92 Year
  Sex: Female
  Weight: 50.35 kg

DRUGS (3)
  1. ELIQUIS [Suspect]
     Active Substance: APIXABAN
     Indication: Atrial fibrillation
     Route: 048
     Dates: start: 202504
  2. VITAMINS NOS [Concomitant]
     Active Substance: VITAMINS
     Indication: Eye disorder
  3. METOPROLOL [Concomitant]
     Active Substance: METOPROLOL
     Indication: Heart rate decreased

REACTIONS (5)
  - Sciatica [Unknown]
  - Arthralgia [Unknown]
  - Dyspnoea [Unknown]
  - Haemorrhage [Unknown]
  - Haemorrhagic diathesis [Unknown]
